FAERS Safety Report 7338849-8 (Version None)
Quarter: 2011Q1

REPORT INFORMATION
  Report Type: 
  Country: None (occurrence: None)
  Receive Date: 20110308
  Receipt Date: 20110228
  Transmission Date: 20110831
  Serious: Yes (Death, Hospitalization)
  Sender: FDA-Public Use
  Company Number: FR-ROCHE-760880

PATIENT
  Sex: Female

DRUGS (4)
  1. CAPECITABINE [Suspect]
     Indication: BREAST CANCER
     Dosage: FREQUENCY UNREPORTED. LAST DOSE PRIOR TO SAE 8 JANUARY 2011.
     Route: 065
     Dates: start: 20101102, end: 20110125
  2. PACLITAXEL [Suspect]
     Indication: BREAST CANCER
     Dosage: FREQUENCY UNREPORTED. LAST DOSE PRIOR TO SAE 4 JANUARY 2011.
     Route: 065
     Dates: start: 20101102, end: 20110125
  3. CORTICOTHERAPY [Concomitant]
  4. BEVACIZUMAB [Suspect]
     Indication: BREAST CANCER
     Dosage: FREQUENCY UNREPORTED. LAST DOSE PRIOR TO SAE 10 JANUARY 2011.
     Route: 065
     Dates: start: 20101102, end: 20110125

REACTIONS (5)
  - NEOPLASM MALIGNANT [None]
  - DISSEMINATED INTRAVASCULAR COAGULATION [None]
  - HEPATOCELLULAR INJURY [None]
  - HEPATIC FAILURE [None]
  - JAUNDICE CHOLESTATIC [None]
